FAERS Safety Report 23835015 (Version 1)
Quarter: 2024Q2

REPORT INFORMATION
  Report Type: Spontaneous
  Country: US (occurrence: US)
  Receive Date: 20240509
  Receipt Date: 20240509
  Transmission Date: 20240716
  Serious: Yes (Hospitalization, Other)
  Sender: FDA-Public Use
  Company Number: US-ACORDA-ACO_176820_2024

PATIENT
  Age: 44 Year
  Sex: Male

DRUGS (3)
  1. AMPYRA [Suspect]
     Active Substance: DALFAMPRIDINE
     Indication: Multiple sclerosis
     Dosage: 10 MILLIGRAM, BID
     Route: 065
     Dates: start: 2016
  2. DALFAMPRIDINE [Suspect]
     Active Substance: DALFAMPRIDINE
     Indication: Product used for unknown indication
     Dosage: UNK
     Route: 065
     Dates: start: 2021
  3. DALFAMPRIDINE [Suspect]
     Active Substance: DALFAMPRIDINE
     Dosage: UNK
     Route: 065
     Dates: start: 2017, end: 2021

REACTIONS (8)
  - COVID-19 [Unknown]
  - Cerebrovascular accident [Unknown]
  - Cognitive disorder [Unknown]
  - Unevaluable event [Unknown]
  - Therapy interrupted [Unknown]
  - Gait disturbance [Unknown]
  - Multiple sclerosis [Unknown]
  - Balance disorder [Unknown]

NARRATIVE: CASE EVENT DATE: 20200101
